FAERS Safety Report 9402324 (Version 2)
Quarter: 2013Q3

REPORT INFORMATION
  Report Type: Spontaneous
  Country: FI (occurrence: FI)
  Receive Date: 20130716
  Receipt Date: 20130719
  Transmission Date: 20140515
  Serious: Yes (Hospitalization, Disabling, Other)
  Sender: FDA-Public Use
  Company Number: FI-PFIZER INC-2013204677

PATIENT
  Age: 74 Year
  Sex: Male

DRUGS (4)
  1. LYRICA [Suspect]
     Indication: HEADACHE
     Dosage: 375 MG, PER DAY
     Dates: start: 20120214, end: 20120925
  2. LYRICA [Suspect]
     Indication: NECK PAIN
  3. COZAAR [Concomitant]
     Indication: BLOOD PRESSURE ABNORMAL
     Dosage: UNK
     Dates: start: 1996
  4. SYMBICORT TURBUHALER ^ASTRAZENECA^ [Concomitant]
     Indication: ASTHMA
     Dosage: UNK
     Dates: start: 1994

REACTIONS (16)
  - Off label use [Unknown]
  - Extrasystoles [Recovered/Resolved with Sequelae]
  - Heart valve incompetence [Recovered/Resolved with Sequelae]
  - Dizziness [Recovered/Resolved with Sequelae]
  - Angina pectoris [Recovered/Resolved with Sequelae]
  - Memory impairment [Recovered/Resolved with Sequelae]
  - Balance disorder [Recovered/Resolved with Sequelae]
  - Weight increased [Recovered/Resolved with Sequelae]
  - Mitral valve incompetence [Unknown]
  - Gastrooesophageal reflux disease [Recovered/Resolved with Sequelae]
  - Muscle disorder [Recovered/Resolved with Sequelae]
  - Nocturia [Recovered/Resolved with Sequelae]
  - Snoring [Recovered/Resolved with Sequelae]
  - Aphonia [Recovered/Resolved with Sequelae]
  - Asthma [Recovered/Resolved with Sequelae]
  - Urinary tract disorder [Recovered/Resolved with Sequelae]
